FAERS Safety Report 7989177-9 (Version None)
Quarter: 2011Q4

REPORT INFORMATION
  Report Type: 
  Country: None (occurrence: None)
  Receive Date: 20111219
  Receipt Date: 20111206
  Transmission Date: 20120403
  Serious: Yes (Other)
  Sender: FDA-Public Use
  Company Number: CH-JNJFOC-20111202612

PATIENT
  Age: 44 Year
  Sex: Female

DRUGS (10)
  1. REMICADE [Suspect]
     Route: 042
     Dates: start: 20080101
  2. REMICADE [Suspect]
     Indication: ANKYLOSING SPONDYLITIS
     Route: 042
     Dates: start: 20111121, end: 20111121
  3. SOLU-MEDROL [Concomitant]
     Indication: PREMEDICATION
     Route: 065
     Dates: start: 20111121, end: 20111121
  4. CELEBREX [Concomitant]
     Route: 048
  5. MAGNESIOCARD [Concomitant]
     Route: 048
  6. MAGNESIUM SALICYLATE [Concomitant]
     Route: 048
  7. OMEPRAZOLE [Concomitant]
     Route: 048
  8. REMICADE [Suspect]
     Route: 042
     Dates: start: 20100101, end: 20100701
  9. LEXOTANIL [Concomitant]
     Route: 048
  10. REMICADE [Suspect]
     Route: 042
     Dates: start: 20111001

REACTIONS (9)
  - ELECTROCARDIOGRAM ST SEGMENT DEPRESSION [None]
  - DYSPNOEA [None]
  - ANAPHYLACTIC REACTION [None]
  - TACHYCARDIA [None]
  - CHEST PAIN [None]
  - DRUG INEFFECTIVE [None]
  - DRUG INTOLERANCE [None]
  - TYPE I HYPERSENSITIVITY [None]
  - INFUSION RELATED REACTION [None]
